FAERS Safety Report 7470553-8 (Version None)
Quarter: 2011Q2

REPORT INFORMATION
  Report Type: 
  Country: None (occurrence: None)
  Receive Date: 20110510
  Receipt Date: 20110422
  Transmission Date: 20111010
  Serious: No
  Sender: FDA-Public Use
  Company Number: US-B.I. PHARMACEUTICALS,INC./RIDGEFIELD-2011-BP-08842BP

PATIENT
  Sex: Male

DRUGS (13)
  1. OMEPRAZOLE [Concomitant]
  2. PRADAXA [Suspect]
     Indication: THROMBOSIS
     Dosage: 300 MG
  3. ADVAIR DISK [Concomitant]
  4. VERAMYST [Concomitant]
  5. FOSAMAX [Concomitant]
  6. CHOLESTYRAMINE [Concomitant]
  7. ALDACTONE [Concomitant]
  8. DIOVAN [Concomitant]
  9. SYNTHROID [Concomitant]
  10. ARICEPT [Concomitant]
  11. FUROSEMIDE [Concomitant]
  12. DIGOXIN [Concomitant]
  13. SPIRIVA [Concomitant]

REACTIONS (1)
  - SKIN DISCOLOURATION [None]
